FAERS Safety Report 4850078-6 (Version None)
Quarter: 2005Q4

REPORT INFORMATION
  Report Type: 
  Country: None (occurrence: None)
  Receive Date: 20051123
  Receipt Date: 20050103
  Transmission Date: 20060501
  Serious: Yes (Other)
  Sender: FDA-Public Use
  Company Number: 2004084906

PATIENT
  Age: 76 Year
  Sex: Male
  Weight: 86.637 kg

DRUGS (7)
  1. LIPITOR [Suspect]
     Indication: BLOOD CHOLESTEROL INCREASED
     Dosage: 40 MG (40 MG, 1 IN 1 D), ORAL
     Route: 048
     Dates: start: 20020601
  2. LIPITOR [Suspect]
     Indication: HYPERLIPIDAEMIA
     Dosage: 40 MG (40 MG, 1 IN 1 D), ORAL
     Route: 048
     Dates: start: 20020601
  3. CELEBREX [Suspect]
     Indication: BONE PAIN
     Dosage: 100 MG (100 MG, 1 IN 1 D), ORAL
     Route: 048
     Dates: start: 20040101
  4. RAMIPRIL [Concomitant]
  5. EZETIMIBE (EZETIMIBE) [Concomitant]
  6. FISH OIL (FISH OIL) [Concomitant]
  7. CLOPIDOGREL BISULFATE [Concomitant]

REACTIONS (4)
  - ANAPHYLACTIC REACTION [None]
  - CONDITION AGGRAVATED [None]
  - DRUG EFFECT DECREASED [None]
  - HYPERTENSION [None]
